FAERS Safety Report 9316399 (Version 1)
Quarter: 2013Q2

REPORT INFORMATION
  Report Type: Spontaneous
  Country: US (occurrence: US)
  Receive Date: 20130530
  Receipt Date: 20130530
  Transmission Date: 20140414
  Serious: Yes (Hospitalization)
  Sender: FDA-Public Use
  Company Number: US-JNJFOC-20130509660

PATIENT
  Sex: Male

DRUGS (7)
  1. RISPERDAL [Suspect]
     Indication: HOSTILITY
     Route: 065
  2. RISPERDAL [Suspect]
     Indication: HOSTILITY
     Route: 065
     Dates: start: 2004
  3. RISPERDAL [Suspect]
     Indication: ANGER
     Route: 065
     Dates: start: 2004
  4. RISPERDAL [Suspect]
     Indication: ANGER
     Route: 065
  5. RISPERDAL [Suspect]
     Indication: PRODUCT USED FOR UNKNOWN INDICATION
     Route: 065
  6. RISPERDAL [Suspect]
     Indication: PRODUCT USED FOR UNKNOWN INDICATION
     Route: 065
     Dates: start: 2004
  7. ZYPREXA [Suspect]
     Indication: PRODUCT USED FOR UNKNOWN INDICATION
     Route: 065

REACTIONS (4)
  - Breast enlargement [Unknown]
  - Nervous system disorder [Unknown]
  - Unevaluable event [Unknown]
  - Abnormal behaviour [Unknown]
